FAERS Safety Report 18149606 (Version 1)
Quarter: 2020Q3

REPORT INFORMATION
  Report Type: Spontaneous
  Country: US (occurrence: US)
  Receive Date: 20200813
  Receipt Date: 20200813
  Transmission Date: 20201103
  Serious: Yes (Life-Threatening, Hospitalization)
  Sender: FDA-Public Use
  Company Number: None

PATIENT
  Age: 7 Year
  Sex: Female
  Weight: 23.4 kg

DRUGS (4)
  1. BRIVACT [Concomitant]
  2. VIMPAT [Concomitant]
     Active Substance: LACOSAMIDE
  3. KLONOPIN [Concomitant]
     Active Substance: CLONAZEPAM
  4. CEFDINIR FOR ORAL SUSPENSION USP [Suspect]
     Active Substance: CEFDINIR
     Indication: EAR INFECTION
     Dosage: ?          QUANTITY:1 TEASPOON(S);?
     Route: 048
     Dates: start: 20191215, end: 20191217

REACTIONS (5)
  - Lethargy [None]
  - Seizure [None]
  - Craniocerebral injury [None]
  - Epilepsy [None]
  - Overdose [None]

NARRATIVE: CASE EVENT DATE: 20191215
